FAERS Safety Report 19041954 (Version 4)
Quarter: 2021Q2

REPORT INFORMATION
  Report Type: Spontaneous
  Country: PL (occurrence: PL)
  Receive Date: 20210323
  Receipt Date: 20210401
  Transmission Date: 20210717
  Serious: Yes (Hospitalization, Other)
  Sender: FDA-Public Use
  Company Number: PL-AUROBINDO-AUR-APL-2021-010276

PATIENT
  Age: 62 Year
  Sex: Female
  Weight: 80 kg

DRUGS (8)
  1. CARVEDILOL. [Suspect]
     Active Substance: CARVEDILOL
     Indication: CARDIAC FAILURE CHRONIC
     Dosage: UNK
     Route: 065
  2. IVABRADINE [Suspect]
     Active Substance: IVABRADINE
     Indication: CARDIAC FAILURE ACUTE
     Dosage: UNK (DOSE OF 2X5 MG )
     Route: 065
  3. NEBIVOLOL. [Suspect]
     Active Substance: NEBIVOLOL
     Indication: CARDIAC FAILURE CHRONIC
  4. NEBIVOLOL. [Suspect]
     Active Substance: NEBIVOLOL
     Indication: PRODUCT USED FOR UNKNOWN INDICATION
     Dosage: UNK
     Route: 065
  5. IVABRADINE [Suspect]
     Active Substance: IVABRADINE
     Indication: TACHYCARDIA
     Dosage: 10 MILLIGRAM, ONCE A DAY (5 MG, 2X PER DAY )
     Route: 065
  6. EPLERENONE. [Suspect]
     Active Substance: EPLERENONE
     Indication: CARDIAC FAILURE CHRONIC
     Dosage: 25 MILLIGRAM, ONCE A DAY
     Route: 065
  7. DIURETIC [Suspect]
     Active Substance: UNSPECIFIED INGREDIENT
     Indication: CARDIAC FAILURE CHRONIC
     Dosage: UNK
     Route: 065
  8. DIURETIC [Suspect]
     Active Substance: UNSPECIFIED INGREDIENT
     Dosage: INCREASED DOSE
     Route: 065

REACTIONS (11)
  - Cardiac failure [Recovering/Resolving]
  - Bronchospasm [Recovered/Resolved]
  - Supraventricular tachycardia [Unknown]
  - Ventricular extrasystoles [Recovered/Resolved]
  - Ventricular tachycardia [Unknown]
  - Peripheral swelling [Unknown]
  - Oedema peripheral [Unknown]
  - Sinus tachycardia [Recovered/Resolved]
  - Drug ineffective [Unknown]
  - Chest pain [Recovered/Resolved]
  - Supraventricular extrasystoles [Recovered/Resolved]
